FAERS Safety Report 9805974 (Version 1)
Quarter: 2014Q1

REPORT INFORMATION
  Report Type: Spontaneous
  Country: GB (occurrence: None)
  Receive Date: 20140107
  Receipt Date: 20140107
  Transmission Date: 20141002
  Serious: Yes (Other)
  Sender: FDA-Public Use
  Company Number: AUR-APL-2014-00039

PATIENT
  Age: 48 Year
  Sex: Female
  Weight: 77.5 kg

DRUGS (8)
  1. AMLODIPINE (AMLODIPINE) [Suspect]
     Indication: PRODUCT USED FOR UNKNOWN INDICATION
     Dates: start: 20130903
  2. CLENIL MODULITE (BECLOMETASONE) [Concomitant]
  3. DOCUSATE SODIUM (DOCUSATE SODIUM) [Concomitant]
  4. LANSOPRAZOLE (LANSOPRAZOLE) [Concomitant]
  5. LOSARTAN (LOSARTAN) [Concomitant]
  6. RAMIPRIL (RAMIPRIL) [Concomitant]
  7. SALBUTAMOL (SALBUTAMOL) [Concomitant]
  8. SERTRALINE (SERTRALINE) [Concomitant]

REACTIONS (5)
  - Depressed mood [None]
  - Eye swelling [None]
  - Eye swelling [None]
  - Anxiety [None]
  - Depression [None]
